FAERS Safety Report 10085475 (Version 2)
Quarter: 2014Q2

REPORT INFORMATION
  Report Type: Report from Study
  Country: DE (occurrence: DE)
  Receive Date: 20140418
  Receipt Date: 20140418
  Transmission Date: 20141212
  Serious: Yes (Disabling)
  Sender: FDA-Public Use
  Company Number: DE-AMGEN INC.-DEUCT2011064311

PATIENT
  Age: 73 Year
  Sex: Female
  Weight: 82 kg

DRUGS (4)
  1. ETANERCEPT [Suspect]
     Indication: RHEUMATOID ARTHRITIS
     Dosage: 50 MG, QWK
     Route: 058
     Dates: start: 20111017
  2. TRAMAL [Concomitant]
     Indication: RHEUMATOID ARTHRITIS
     Dosage: 50 MG, UNK
     Route: 048
     Dates: start: 20111101
  3. VIGANTOLETTEN [Concomitant]
     Indication: RHEUMATOID ARTHRITIS
     Dosage: 1000 IU, UNK
     Route: 048
     Dates: start: 201110
  4. VIGANTOLETTEN [Concomitant]
     Indication: OSTEOPOROSIS
     Dosage: UNK

REACTIONS (1)
  - Pruritus [Not Recovered/Not Resolved]
